FAERS Safety Report 5606535-8 (Version None)
Quarter: 2008Q1

REPORT INFORMATION
  Report Type: 
  Country: None (occurrence: None)
  Receive Date: 20080129
  Receipt Date: 20080128
  Transmission Date: 20080703
  Serious: Yes (Other)
  Sender: FDA-Public Use
  Company Number: D0055530A

PATIENT
  Age: 48 Year
  Sex: Female

DRUGS (3)
  1. VIANI [Suspect]
     Route: 055
  2. ALBUTEROL [Concomitant]
     Route: 055
  3. L-THYROXIN [Concomitant]
     Route: 065

REACTIONS (6)
  - ASTHMA [None]
  - DRUG INEFFECTIVE [None]
  - GENERAL PHYSICAL HEALTH DETERIORATION [None]
  - PHARMACEUTICAL PRODUCT COMPLAINT [None]
  - SECRETION DISCHARGE [None]
  - THROAT IRRITATION [None]
